FAERS Safety Report 6097835-9 (Version None)
Quarter: 2009Q1

REPORT INFORMATION
  Report Type: 
  Country: None (occurrence: None)
  Receive Date: 20090227
  Receipt Date: 20090216
  Transmission Date: 20090719
  Serious: Yes (Other)
  Sender: FDA-Public Use
  Company Number: US-PFIZER INC-2009160882

PATIENT
  Sex: Male
  Weight: 112.93 kg

DRUGS (4)
  1. CHANTIX [Suspect]
     Indication: TOBACCO USER
     Dosage: UNK
     Route: 048
     Dates: start: 20080901
  2. CHANTIX [Suspect]
     Indication: SMOKING CESSATION THERAPY
  3. ALCOHOL [Suspect]
     Dosage: UNK
  4. PRILOSEC [Concomitant]
     Dosage: UNK

REACTIONS (3)
  - ABNORMAL BEHAVIOUR [None]
  - AMNESIA [None]
  - MIGRAINE [None]
